FAERS Safety Report 22614396 (Version 1)
Quarter: 2023Q2

REPORT INFORMATION
  Report Type: Spontaneous
  Country: US (occurrence: US)
  Receive Date: 20230619
  Receipt Date: 20230619
  Transmission Date: 20230721
  Serious: Yes (Other)
  Sender: FDA-Public Use
  Company Number: US-drreddys-LIT/USA/23/0167008

PATIENT
  Age: 6 Year
  Sex: Female

DRUGS (6)
  1. SIROLIMUS [Suspect]
     Active Substance: SIROLIMUS
     Indication: Lymphatic malformation
  2. DOXYCYCLINE [Suspect]
     Active Substance: DOXYCYCLINE
     Indication: Lymphatic malformation
  3. BLEOMYCIN [Suspect]
     Active Substance: BLEOMYCIN SULFATE
     Indication: Lymphatic malformation
  4. ALCOHOL [Suspect]
     Active Substance: ALCOHOL
     Indication: Lymphatic malformation
  5. ENBUCRILATE [Suspect]
     Active Substance: ENBUCRILATE
     Indication: Lymphatic malformation
  6. SODIUM TETRADECYL SULFATE [Suspect]
     Active Substance: SODIUM TETRADECYL SULFATE
     Indication: Lymphatic malformation

REACTIONS (4)
  - Lymphatic malformation [Recovering/Resolving]
  - Disease progression [Recovering/Resolving]
  - Skin lesion [Recovering/Resolving]
  - Drug ineffective for unapproved indication [Unknown]
